FAERS Safety Report 14897049 (Version 2)
Quarter: 2018Q2

REPORT INFORMATION
  Report Type: Report from Study
  Country: FR (occurrence: FR)
  Receive Date: 20180515
  Receipt Date: 20180524
  Transmission Date: 20180711
  Serious: Yes (Death, Other)
  Sender: FDA-Public Use
  Company Number: FR-009507513-1802FRA004303

PATIENT
  Age: 48 Year
  Sex: Male
  Weight: 80 kg

DRUGS (36)
  1. NOXAFIL [Concomitant]
     Active Substance: POSACONAZOLE
  2. DELURSAN [Concomitant]
     Active Substance: URSODIOL
  3. DOLIPRANE [Concomitant]
     Active Substance: ACETAMINOPHEN
  4. METHOTREXATE. [Concomitant]
     Active Substance: METHOTREXATE
  5. VANCOMYCIN [Concomitant]
     Active Substance: VANCOMYCIN
  6. LEDERFOLINE [Concomitant]
     Active Substance: LEUCOVORIN CALCIUM
  7. AZYTER [Concomitant]
     Active Substance: AZITHROMYCIN ANHYDROUS
  8. DACRYOSERUM [Concomitant]
     Active Substance: BORIC ACID\SODIUM BORATE
  9. PRIVIGEN [Concomitant]
     Active Substance: HUMAN IMMUNOGLOBULIN G
  10. EUPANTOL [Concomitant]
     Active Substance: PANTOPRAZOLE SODIUM
  11. SOLUPRED [Concomitant]
  12. SMECTA [Concomitant]
     Active Substance: MONTMORILLONITE
  13. MAG 2 [Concomitant]
     Active Substance: MAGNESIUM CHLORIDE
  14. ENTOCORT [Concomitant]
     Active Substance: BUDESONIDE
  15. CACIT [Concomitant]
     Active Substance: CALCIUM\VITAMIN D
  16. ACETAMINOPHEN. [Concomitant]
     Active Substance: ACETAMINOPHEN
  17. DECAN (MINERALS) [Concomitant]
     Active Substance: MINERALS
  18. IMOVANE [Concomitant]
     Active Substance: ZOPICLONE
  19. BETADINE [Concomitant]
     Active Substance: POVIDONE-IODINE
  20. PHOCYTAN [Concomitant]
     Active Substance: .ALPHA.-GLUCOSE-1-PHOSPHATE
  21. CERNEVIT [Concomitant]
     Active Substance: VITAMINS
  22. POTASSIUM (UNSPECIFIED) [Concomitant]
     Active Substance: POTASSIUM
  23. TIORFAN [Concomitant]
     Active Substance: RACECADOTRIL
  24. LETERMOVIR [Suspect]
     Active Substance: LETERMOVIR
     Indication: ANTIVIRAL PROPHYLAXIS
     Dosage: 480 MG, QD
     Route: 048
     Dates: start: 20171106, end: 20180126
  25. LAROXYL [Concomitant]
     Active Substance: AMITRIPTYLINE HYDROCHLORIDE
  26. NEORAL [Concomitant]
     Active Substance: CYCLOSPORINE
  27. BACTRIM [Concomitant]
     Active Substance: SULFAMETHOXAZOLE\TRIMETHOPRIM
  28. HYDROCORTISONE. [Concomitant]
     Active Substance: HYDROCORTISONE
  29. MEROPENEM. [Concomitant]
     Active Substance: MEROPENEM
  30. ZELITREX [Concomitant]
     Active Substance: VALACYCLOVIR HYDROCHLORIDE
  31. CONTRAMAL [Concomitant]
     Active Substance: TRAMADOL HYDROCHLORIDE
  32. PRIMPERAN [Concomitant]
     Active Substance: METOCLOPRAMIDE HYDROCHLORIDE
  33. SMOFKABIVEN [Concomitant]
     Active Substance: AMINO ACIDS\DEXTROSE\ELECTROLYTES NOS\SOYBEAN OIL
  34. PHOSPHONEUROS [Concomitant]
     Active Substance: CALCIUM PHOSPHATE, DIBASIC, ANHYDROUS\MAGNESIUM GLYCEROPHOSPHATE\PHOSPHORIC ACID\SODIUM PHOSPHATE, DIBASIC
  35. ZARZIO [Concomitant]
     Active Substance: FILGRASTIM
  36. SPASFON (PHLOROGLUCINOL, TRIMETHYLPHLOROGLUCINOL) [Concomitant]
     Active Substance: PHLOROGLUCINOL\1,3,5-TRIMETHOXYBENZENE

REACTIONS (15)
  - Malaise [Unknown]
  - Graft versus host disease [Fatal]
  - Hypogammaglobulinaemia [Unknown]
  - Enterobacter bacteraemia [Recovered/Resolved]
  - Bone marrow failure [Unknown]
  - Pyrexia [Recovered/Resolved]
  - Contusion [Unknown]
  - Pain [Unknown]
  - Oedema peripheral [Unknown]
  - Neutrophil count abnormal [Unknown]
  - Influenza [Fatal]
  - Colitis [Fatal]
  - Blepharitis [Unknown]
  - Haemorrhoidal haemorrhage [Unknown]
  - Hypoalbuminaemia [Unknown]

NARRATIVE: CASE EVENT DATE: 20171123
